FAERS Safety Report 10653001 (Version 1)
Quarter: 2014Q4

REPORT INFORMATION
  Report Type: Spontaneous
  Country: US (occurrence: US)
  Receive Date: 20141215
  Receipt Date: 20141215
  Transmission Date: 20150529
  Serious: No
  Sender: FDA-Public Use
  Company Number: US-GLAXOSMITHKLINE-US2014GSK018355

PATIENT
  Sex: Female

DRUGS (9)
  1. PROMACTA [Suspect]
     Active Substance: ELTROMBOPAG OLAMINE
     Indication: IMMUNE THROMBOCYTOPENIC PURPURA
     Dosage: VARIABLE DOSING, QD
     Dates: start: 201401
  2. COUMADIN [Concomitant]
     Active Substance: WARFARIN SODIUM
  3. PAROXETINE [Concomitant]
     Active Substance: PAROXETINE\PAROXETINE HYDROCHLORIDE
  4. POTASSIUM [Concomitant]
     Active Substance: POTASSIUM
  5. PREDNISONE. [Concomitant]
     Active Substance: PREDNISONE
  6. SIMVASTATIN. [Concomitant]
     Active Substance: SIMVASTATIN
  7. TRAZODONE [Concomitant]
     Active Substance: TRAZODONE HYDROCHLORIDE
  8. THYROXINE [Concomitant]
     Active Substance: LEVOTHYROXINE
  9. NADOLOL. [Concomitant]
     Active Substance: NADOLOL

REACTIONS (3)
  - Gastric disorder [Unknown]
  - Weight decreased [Unknown]
  - Nausea [Unknown]

NARRATIVE: CASE EVENT DATE: 2014
